FAERS Safety Report 12179791 (Version 1)
Quarter: 2016Q1

REPORT INFORMATION
  Report Type: Spontaneous
  Country: DE (occurrence: DE)
  Receive Date: 20160315
  Receipt Date: 20160315
  Transmission Date: 20160526
  Serious: Yes (Other)
  Sender: FDA-Public Use
  Company Number: DE-SUN PHARMACEUTICAL INDUSTRIES LTD-2016RR-113155

PATIENT

DRUGS (1)
  1. CEFUROX BASICS 500 MG FILMTABLETTEN [Suspect]
     Active Substance: CEFUROXIME
     Indication: NASOPHARYNGITIS
     Route: 065

REACTIONS (6)
  - Rash pruritic [Recovered/Resolved]
  - Drug intolerance [Recovered/Resolved]
  - Blister [Recovered/Resolved]
  - Renal pain [Recovered/Resolved]
  - Dizziness [Recovered/Resolved]
  - Hyperpyrexia [Recovered/Resolved]
